FAERS Safety Report 20533807 (Version 1)
Quarter: 2022Q1

REPORT INFORMATION
  Report Type: Report from Study
  Country: US (occurrence: None)
  Receive Date: 20220301
  Receipt Date: 20220301
  Transmission Date: 20220423
  Serious: Yes (Hospitalization)
  Sender: FDA-Public Use
  Company Number: 2022A082058

PATIENT
  Age: 27862 Day
  Sex: Male
  Weight: 95.3 kg

DRUGS (3)
  1. BRILINTA [Suspect]
     Active Substance: TICAGRELOR
     Indication: Thrombosis
     Route: 048
     Dates: start: 20220215, end: 20220217
  2. BRILINTA [Suspect]
     Active Substance: TICAGRELOR
     Indication: Thrombosis
     Route: 048
     Dates: start: 20220218, end: 20220219
  3. PLAVIX [Concomitant]
     Active Substance: CLOPIDOGREL BISULFATE

REACTIONS (5)
  - Rash [Recovered/Resolved]
  - Lip swelling [Recovered/Resolved]
  - Pruritus [Recovered/Resolved]
  - Peripheral swelling [Recovered/Resolved]
  - Dyspnoea [Recovered/Resolved]

NARRATIVE: CASE EVENT DATE: 20220217
